FAERS Safety Report 7732720-5 (Version None)
Quarter: 2011Q3

REPORT INFORMATION
  Report Type: 
  Country: None (occurrence: None)
  Receive Date: 20110907
  Receipt Date: 20110830
  Transmission Date: 20111222
  Serious: No
  Sender: FDA-Public Use
  Company Number: US-BIOGENIDEC-2011BI033018

PATIENT
  Age: 35 Year
  Sex: Female

DRUGS (4)
  1. TRAMADOL HYDROCHLORIDE [Concomitant]
     Indication: HYPOAESTHESIA
  2. TRAMADOL HYDROCHLORIDE [Concomitant]
     Indication: PAIN IN EXTREMITY
  3. XANAX [Concomitant]
     Indication: DEPRESSION
  4. AVONEX [Suspect]
     Indication: MULTIPLE SCLEROSIS
     Route: 030
     Dates: start: 20100205, end: 20110101

REACTIONS (4)
  - AGGRESSION [None]
  - FEAR [None]
  - INFLUENZA LIKE ILLNESS [None]
  - SOLILOQUY [None]
